FAERS Safety Report 4602687-7 (Version None)
Quarter: 2005Q1

REPORT INFORMATION
  Report Type: 
  Country: None (occurrence: None)
  Receive Date: 20050307
  Receipt Date: 20050221
  Transmission Date: 20050727
  Serious: Yes (Hospitalization)
  Sender: FDA-Public Use
  Company Number: 2005035187

PATIENT
  Age: 79 Year
  Sex: Female

DRUGS (2)
  1. CELEBREX [Suspect]
     Indication: SPINAL OSTEOARTHRITIS
     Dosage: 200 MG (200 MG , 1 IN 1 D), ORAL
     Route: 048
     Dates: start: 20041019, end: 20050120
  2. CACIT    (CALCIUM CARBONATE, CITRIC ACID) [Concomitant]

REACTIONS (4)
  - CARDIAC FAILURE [None]
  - DYSPNOEA [None]
  - OEDEMA PERIPHERAL [None]
  - SHOCK [None]
